FAERS Safety Report 7472991-6 (Version None)
Quarter: 2011Q2

REPORT INFORMATION
  Report Type: 
  Country: None (occurrence: None)
  Receive Date: 20110511
  Receipt Date: 20110427
  Transmission Date: 20111010
  Serious: Yes (Hospitalization, Other)
  Sender: FDA-Public Use
  Company Number: PHHY2011FR37357

PATIENT
  Sex: Female

DRUGS (7)
  1. STABLON [Suspect]
     Dosage: 12.5 MG, TID
     Dates: start: 20100401
  2. IMOVANE [Concomitant]
     Dosage: UNK UKN, UNK
  3. LEPTICUR [Concomitant]
     Dosage: UNK UKN, UNK
  4. EXELON [Suspect]
     Indication: DEMENTIA ALZHEIMER'S TYPE
     Dosage: 9.5 MG/ 24 H
     Route: 062
     Dates: start: 20100401, end: 20110129
  5. ACETAMINOPHEN AND TRAMADOL HCL [Suspect]
     Dosage: 37.532 MG, QD
  6. SERESTA [Concomitant]
     Dosage: UNK UKN, UNK
  7. LOVENOX [Concomitant]
     Dosage: UNK UKN, UNK

REACTIONS (17)
  - HYPERTHERMIA [None]
  - BLOOD CREATINE INCREASED [None]
  - METABOLIC DISORDER [None]
  - HYPERNATRAEMIA [None]
  - RENAL FAILURE [None]
  - LIVER DISORDER [None]
  - CHOLESTASIS [None]
  - LIPASE INCREASED [None]
  - DEPRESSED LEVEL OF CONSCIOUSNESS [None]
  - HYPOKALAEMIA [None]
  - SKIN DISCOLOURATION [None]
  - ALANINE AMINOTRANSFERASE INCREASED [None]
  - BLOOD ALKALINE PHOSPHATASE INCREASED [None]
  - CYTOLYTIC HEPATITIS [None]
  - ASPARTATE AMINOTRANSFERASE INCREASED [None]
  - GAMMA-GLUTAMYLTRANSFERASE INCREASED [None]
  - COUGH [None]
